FAERS Safety Report 18233226 (Version 1)
Quarter: 2020Q3

REPORT INFORMATION
  Report Type: Spontaneous
  Country: US (occurrence: US)
  Receive Date: 20200904
  Receipt Date: 20200904
  Transmission Date: 20201103
  Serious: Yes (Other)
  Sender: FDA-Public Use
  Company Number: US-OSMOTICA_PHARMACEUTICAL_US_LLC-POI0573202000351

PATIENT
  Age: 63 Year
  Sex: Male

DRUGS (10)
  1. OSMOLEX ER [Suspect]
     Active Substance: AMANTADINE
     Dates: start: 20191127, end: 201912
  2. GENVOYA [Concomitant]
     Active Substance: COBICISTAT\ELVITEGRAVIR\EMTRICITABINE\TENOFOVIR ALAFENAMIDE FUMARATE
     Indication: PRODUCT USED FOR UNKNOWN INDICATION
  3. OSMOLEX ER [Suspect]
     Active Substance: AMANTADINE
     Dosage: ONE HALF OF A 193 MG TABLET
     Dates: start: 201912, end: 20200102
  4. OSMOLEX ER [Suspect]
     Active Substance: AMANTADINE
     Dosage: 129 AND 193 MG TOGETHER
     Dates: start: 20200427, end: 20200525
  5. OSMOLEX ER [Suspect]
     Active Substance: AMANTADINE
     Indication: PARKINSON^S DISEASE
     Dates: start: 20191024, end: 20191126
  6. OSMOLEX ER [Suspect]
     Active Substance: AMANTADINE
     Dates: start: 20200103, end: 20200426
  7. PRAVASTATIN. [Concomitant]
     Active Substance: PRAVASTATIN
     Indication: PRODUCT USED FOR UNKNOWN INDICATION
  8. RISPERDAL [Concomitant]
     Active Substance: RISPERIDONE
     Indication: PRODUCT USED FOR UNKNOWN INDICATION
  9. OSMOLEX ER [Suspect]
     Active Substance: AMANTADINE
     Dates: start: 20200526
  10. VITAMIN D3 [Concomitant]
     Active Substance: CHOLECALCIFEROL
     Indication: PRODUCT USED FOR UNKNOWN INDICATION

REACTIONS (5)
  - Hallucination [Recovering/Resolving]
  - Rash [Recovered/Resolved]
  - Insomnia [Recovering/Resolving]
  - Oedema peripheral [Recovered/Resolved]
  - Incorrect dose administered [Recovered/Resolved]

NARRATIVE: CASE EVENT DATE: 20191127
